FAERS Safety Report 8425431-4 (Version None)
Quarter: 2012Q2

REPORT INFORMATION
  Report Type: 
  Country: None (occurrence: None)
  Receive Date: 20120604
  Receipt Date: 20120524
  Transmission Date: 20120825
  Serious: Yes (Life-Threatening, Hospitalization, Other)
  Sender: FDA-Public Use
  Company Number: AUR-APL-2012-02391

PATIENT
  Age: 80 Year
  Sex: Male
  Weight: 75 kg

DRUGS (10)
  1. DIHYDROCODEINE BITARTRATE INJ [Concomitant]
  2. IBUPROFEN [Concomitant]
  3. PREDNISOLONE [Concomitant]
  4. DLTEPARIN SODIUM (DALTEPARIN SODIUM) [Concomitant]
  5. ADCAL-D3 (LEKOVIT CA) [Concomitant]
  6. OMEPRAZOLE [Concomitant]
  7. AMOXICILLIN AND CLAVULANATE POTASSIUM [Suspect]
     Indication: RESPIRATORY TRACT INFECTION
     Dosage: 1875 MG (625 MG, 3 IN 1 D), ORAL
     Route: 048
     Dates: start: 20120308, end: 20120318
  8. ALENDRTONATE (ALENDRONATE SODIUM) [Concomitant]
  9. CLARITHROMYCIN [Concomitant]
  10. TELMISARTAN [Concomitant]

REACTIONS (1)
  - HEPATIC FAILURE [None]
